FAERS Safety Report 19963504 (Version 3)
Quarter: 2025Q4

REPORT INFORMATION
  Report Type: Spontaneous
  Country: US (occurrence: US)
  Receive Date: 20211018
  Receipt Date: 20251230
  Transmission Date: 20260117
  Serious: No
  Sender: NOVARTIS
  Company Number: US-NOVARTISTESTPH-NVSC2021US235233

PATIENT
  Age: 41 Year
  Sex: Female

DRUGS (1)
  1. KESIMPTA [Suspect]
     Active Substance: OFATUMUMAB
     Indication: Relapsing multiple sclerosis
     Dosage: 20 MG, QMO
     Route: 058
     Dates: start: 202105

REACTIONS (1)
  - Lymphadenopathy [Recovering/Resolving]
